FAERS Safety Report 9412215 (Version 2)
Quarter: 2013Q3

REPORT INFORMATION
  Report Type: Spontaneous
  Country: US (occurrence: None)
  Receive Date: 20130515
  Receipt Date: 20130711
  Transmission Date: 20140515
  Serious: Yes (Hospitalization)
  Sender: FDA-Public Use
  Company Number: ACO_31478_2012

PATIENT
  Age: 50 Year
  Sex: Female

DRUGS (3)
  1. AMPYRA (DALFAMPRIDINE) TABLET, 10MG [Suspect]
     Indication: PRODUCT USED FOR UNKNOWN INDICATION
     Dates: start: 201205, end: 2012
  2. COPAXONE (GLATIRAMER ACETATE) [Concomitant]
  3. AMANTADINE (AMANTADINE) [Concomitant]

REACTIONS (5)
  - Convulsion [None]
  - Inappropriate schedule of drug administration [None]
  - Brain neoplasm [None]
  - Drug hypersensitivity [None]
  - Fall [None]
